FAERS Safety Report 9680343 (Version 1)
Quarter: 2013Q4

REPORT INFORMATION
  Report Type: Spontaneous
  Country: US (occurrence: US)
  Receive Date: 20131111
  Receipt Date: 20131111
  Transmission Date: 20140711
  Serious: Yes (Hospitalization, Other)
  Sender: FDA-Public Use
  Company Number: US-BRISTOL-MYERS SQUIBB COMPANY-19723345

PATIENT
  Age: 84 Year
  Sex: Female
  Weight: 48.52 kg

DRUGS (5)
  1. WARFARIN SODIUM [Suspect]
     Indication: ATRIAL FIBRILLATION
     Dosage: 5MG DAILY, WEDNESDAYS-7MG
  2. DIGOXIN [Concomitant]
  3. LEVOTHYROXINE [Concomitant]
  4. DILTIAZEM HCL [Concomitant]
  5. SIMVASTATIN [Concomitant]
     Dosage: MONDAY, WEDNESDAY, FRIDAY.

REACTIONS (3)
  - Cerebrovascular accident [Unknown]
  - Transient ischaemic attack [Unknown]
  - Contusion [Unknown]
